FAERS Safety Report 5160680-2 (Version None)
Quarter: 2006Q4

REPORT INFORMATION
  Report Type: 
  Country: None (occurrence: None)
  Receive Date: 20061121
  Receipt Date: 20061106
  Transmission Date: 20070319
  Serious: Yes (Other)
  Sender: FDA-Public Use
  Company Number: 232212

PATIENT
  Sex: Female

DRUGS (3)
  1. AVASTIN [Suspect]
     Indication: MACULAR DEGENERATION
     Dosage: UNK, 1/MONTH, UNK
     Dates: start: 20060201, end: 20060401
  2. VYTORIN [Concomitant]
  3. AVAPRO [Concomitant]

REACTIONS (1)
  - BLOOD PRESSURE INCREASED [None]
